FAERS Safety Report 8607306-0 (Version None)
Quarter: 2012Q3

REPORT INFORMATION
  Report Type: 
  Country: None (occurrence: None)
  Receive Date: 20120807
  Receipt Date: 20120724
  Transmission Date: 20120928
  Serious: Yes (Other)
  Sender: FDA-Public Use
  Company Number: DKLU1083637

PATIENT
  Sex: Male

DRUGS (13)
  1. PHENYTOIN (PHENYTOIN) [Suspect]
     Indication: INFANTILE SPASMS
  2. NITRAZEPAM [Concomitant]
  3. VITAMIN B6 [Concomitant]
  4. POTASSIUM BROMIDE (POTASSIUM BROMIDE) [Concomitant]
  5. ONFI [Suspect]
     Indication: INFANTILE SPASMS
  6. PHENOBARBITAL TAB [Suspect]
     Indication: INFANTILE SPASMS
  7. CARBAMAZEPINE [Suspect]
     Indication: INFANTILE SPASMS
  8. ACETAZOLAMIDE [Concomitant]
  9. TOPIRAMATE [Suspect]
     Indication: INFANTILE SPASMS
  10. SULTIAME) (SULTIAME) [Concomitant]
  11. DIAZEPAM [Suspect]
     Indication: INFANTILE SPASMS
  12. VALPROIC ACID [Suspect]
     Indication: INFANTILE SPASMS
  13. BENZODIAZEPINE DERIVATIVES (BENZODIAZEPINE DERIVATIVES) [Concomitant]

REACTIONS (3)
  - BEDRIDDEN [None]
  - DRUG INEFFECTIVE [None]
  - DEVELOPMENTAL DELAY [None]
